FAERS Safety Report 21381337 (Version 1)
Quarter: 2022Q3

REPORT INFORMATION
  Report Type: Spontaneous
  Country: CN (occurrence: CN)
  Receive Date: 20220927
  Receipt Date: 20220927
  Transmission Date: 20221027
  Serious: Yes (Life-Threatening, Hospitalization, Other)
  Sender: FDA-Public Use
  Company Number: CN-PFIZER INC-PV202200070051

PATIENT
  Age: 84 Year
  Sex: Female
  Weight: 40 kg

DRUGS (1)
  1. ZYVOX [Suspect]
     Active Substance: LINEZOLID
     Indication: Respiratory failure
     Dosage: 600 MG, 2X/DAY
     Route: 041
     Dates: start: 20220828, end: 20220912

REACTIONS (2)
  - Platelet count decreased [Recovered/Resolved]
  - Gastrointestinal haemorrhage [Recovered/Resolved]

NARRATIVE: CASE EVENT DATE: 20220910
